FAERS Safety Report 23538246 (Version 1)
Quarter: 2024Q1

REPORT INFORMATION
  Report Type: Spontaneous
  Country: US (occurrence: US)
  Receive Date: 20240219
  Receipt Date: 20240219
  Transmission Date: 20240410
  Serious: No
  Sender: FDA-Public Use
  Company Number: US-Ipsen Biopharmaceuticals, Inc.-2024-02609

PATIENT
  Age: 40 Year
  Sex: Female

DRUGS (4)
  1. DYSPORT [Suspect]
     Active Substance: ABOBOTULINUMTOXINA
     Indication: Skin wrinkling
     Dosage: 60 U IN FOREHEAD, GLABELLAR, CROW^S FEET AREA
     Route: 065
     Dates: start: 20240120, end: 20240120
  2. DYSPORT [Suspect]
     Active Substance: ABOBOTULINUMTOXINA
     Indication: Skin wrinkling
     Dosage: 20 U IN FOREHEAD
     Route: 065
     Dates: start: 20240208, end: 20240208
  3. DYSPORT [Suspect]
     Active Substance: ABOBOTULINUMTOXINA
     Indication: Skin wrinkling
  4. DYSPORT [Suspect]
     Active Substance: ABOBOTULINUMTOXINA
     Indication: Off label use

REACTIONS (4)
  - Off label use [Unknown]
  - Off label use [Unknown]
  - Drug ineffective [Unknown]
  - Injection site swelling [Unknown]

NARRATIVE: CASE EVENT DATE: 20200101
